FAERS Safety Report 8033108-2 (Version None)
Quarter: 2012Q1

REPORT INFORMATION
  Report Type: 
  Country: None (occurrence: None)
  Receive Date: 20120110
  Receipt Date: 20120110
  Transmission Date: 20120608
  Serious: Yes (Other)
  Sender: FDA-Public Use
  Company Number: None

PATIENT
  Age: 33 Year
  Sex: Female
  Weight: 55.791 kg

DRUGS (1)
  1. TRAZODONE HCL [Suspect]
     Indication: INSOMNIA
     Dates: start: 20111202, end: 20111203

REACTIONS (7)
  - NAUSEA [None]
  - LOSS OF CONSCIOUSNESS [None]
  - DYSSTASIA [None]
  - SELF-MEDICATION [None]
  - ANXIETY [None]
  - FALL [None]
  - BLOOD PRESSURE DECREASED [None]
